FAERS Safety Report 6354525-2 (Version None)
Quarter: 2009Q3

REPORT INFORMATION
  Report Type: 
  Country: None (occurrence: None)
  Receive Date: 20090914
  Receipt Date: 20090909
  Transmission Date: 20100115
  Serious: Yes (Other)
  Sender: FDA-Public Use
  Company Number: US-BRISTOL-MYERS SQUIBB COMPANY-14773212

PATIENT
  Age: 60 Year
  Sex: Female
  Weight: 61 kg

DRUGS (9)
  1. SINEMET [Suspect]
  2. NOVANTRONE [Suspect]
     Indication: MULTIPLE SCLEROSIS
     Dosage: 20MG/DOSE:14FEB,9MAY,13AUG05+11MAY06; 21MG/DOSE:3AUG,9NOV06,8FEB07,12JUN07; TOTAL-96MG/M2
     Route: 042
     Dates: start: 20050214, end: 20070612
  3. MIRAPEX [Suspect]
  4. BACLOFEN [Concomitant]
     Indication: MULTIPLE SCLEROSIS
  5. BETASERON [Concomitant]
     Indication: MULTIPLE SCLEROSIS
  6. TETRACYCLINE [Concomitant]
  7. CLONAZEPAM [Concomitant]
  8. FOSAMAX [Concomitant]
  9. TIZANIDINE HCL [Concomitant]

REACTIONS (4)
  - AORTIC VALVE INCOMPETENCE [None]
  - ATRIAL FIBRILLATION [None]
  - CARDIAC FAILURE CONGESTIVE [None]
  - CARDIOMYOPATHY [None]
